FAERS Safety Report 7750702-4 (Version None)
Quarter: 2011Q3

REPORT INFORMATION
  Report Type: 
  Country: None (occurrence: None)
  Receive Date: 20110914
  Receipt Date: 20110906
  Transmission Date: 20111222
  Serious: Yes (Death)
  Sender: FDA-Public Use
  Company Number: GB-JNJFOC-20110902594

PATIENT
  Age: 61 Year
  Sex: Female

DRUGS (3)
  1. INFLIXIMAB, RECOMBINANT [Suspect]
     Indication: RHEUMATOID ARTHRITIS
     Route: 042
     Dates: start: 20020403, end: 20050118
  2. METHOTREXATE [Concomitant]
     Dates: start: 20071114
  3. METHOTREXATE [Concomitant]
     Dates: start: 20020403

REACTIONS (1)
  - NON-SMALL CELL LUNG CANCER [None]
